FAERS Safety Report 12217765 (Version 1)
Quarter: 2016Q1

REPORT INFORMATION
  Report Type: Spontaneous
  Country: DE (occurrence: DE)
  Receive Date: 20160329
  Receipt Date: 20160329
  Transmission Date: 20160526
  Serious: Yes (Other)
  Sender: FDA-Public Use
  Company Number: DE-DRREDDYS-GER/GER/16/0078190

PATIENT
  Age: 36 Year
  Sex: Female
  Weight: 88 kg

DRUGS (3)
  1. QUETIAPINE [Suspect]
     Active Substance: QUETIAPINE
     Indication: MANIA
     Route: 048
     Dates: start: 20150114, end: 20151025
  2. DOPPELHERZ [Concomitant]
     Active Substance: DIETARY SUPPLEMENT
     Indication: PROPHYLAXIS OF NEURAL TUBE DEFECT
     Route: 048
  3. RIZINUS?L [Concomitant]
     Indication: LABOUR INDUCTION
     Route: 048

REACTIONS (2)
  - Exposure during pregnancy [Unknown]
  - Pre-eclampsia [Unknown]
